FAERS Safety Report 5158074-9 (Version None)
Quarter: 2006Q4

REPORT INFORMATION
  Report Type: 
  Country: None (occurrence: None)
  Receive Date: 20061116
  Receipt Date: 20061103
  Transmission Date: 20070319
  Serious: Yes (Hospitalization)
  Sender: FDA-Public Use
  Company Number: E3810-00205-SPO-CA

PATIENT
  Age: 22 Year
  Sex: Male

DRUGS (1)
  1. RABEPRAZOLE SODIUM [Suspect]
     Indication: GASTRIC DISORDER
     Dosage: 20 MG, 1 IN 1 D, ORAL
     Route: 048

REACTIONS (5)
  - AGITATION [None]
  - HALLUCINATIONS, MIXED [None]
  - INTENTIONAL OVERDOSE [None]
  - PSYCHOTIC DISORDER [None]
  - SELF-MEDICATION [None]
